FAERS Safety Report 5384285-3 (Version None)
Quarter: 2007Q3

REPORT INFORMATION
  Report Type: 
  Country: None (occurrence: None)
  Receive Date: 20070711
  Receipt Date: 20070629
  Transmission Date: 20080115
  Serious: Yes (Hospitalization)
  Sender: FDA-Public Use
  Company Number: PHBS2007PA10839

PATIENT
  Age: 90 Year
  Sex: Female

DRUGS (7)
  1. EXELON [Suspect]
     Indication: SENILE DEMENTIA
     Dosage: 1.5 MG/D
     Route: 048
  2. EXELON [Suspect]
     Dosage: 3 MG/D
     Route: 048
  3. EXELON [Suspect]
     Dosage: 4.5 MG/D
     Route: 048
  4. ENALAPRIL MALEATE [Concomitant]
     Dosage: 20 MG, Q12H
     Route: 048
  5. INDAPAMIDE [Concomitant]
     Dosage: 2.5 MG/D
     Route: 048
  6. PROZAC [Concomitant]
     Dosage: 20 MG/D
     Route: 048
  7. LAMICTAL [Concomitant]
     Dosage: 50 MG, BID
     Route: 048

REACTIONS (5)
  - CEREBRAL ATROPHY [None]
  - COMPUTERISED TOMOGRAM ABNORMAL [None]
  - HYDROCEPHALUS [None]
  - HYPONATRAEMIA [None]
  - SYNCOPE [None]
